FAERS Safety Report 9643348 (Version 1)
Quarter: 2013Q4

REPORT INFORMATION
  Report Type: Spontaneous
  Country: DE (occurrence: DE)
  Receive Date: 20131024
  Receipt Date: 20131024
  Transmission Date: 20140711
  Serious: Yes (Hospitalization, Other)
  Sender: FDA-Public Use
  Company Number: DE-JNJFOC-20131013004

PATIENT
  Age: 79 Year
  Sex: Female
  Weight: 67 kg

DRUGS (6)
  1. XARELTO [Suspect]
     Indication: CARDIAC FAILURE
     Route: 048
     Dates: start: 20120522, end: 20130708
  2. XARELTO [Suspect]
     Indication: ATRIAL FIBRILLATION
     Route: 048
     Dates: start: 20120522, end: 20130708
  3. L-THYROXIN [Concomitant]
     Route: 065
  4. DIGIMERCK [Concomitant]
     Route: 065
  5. PANTOPRAZOLE [Concomitant]
     Route: 065
  6. BISOPROLOL [Concomitant]
     Route: 065

REACTIONS (3)
  - Gastrointestinal haemorrhage [Recovered/Resolved]
  - Renal failure [Unknown]
  - Epistaxis [Unknown]
